FAERS Safety Report 20374911 (Version 1)
Quarter: 2022Q1

REPORT INFORMATION
  Report Type: Spontaneous
  Country: US (occurrence: US)
  Receive Date: 20220125
  Receipt Date: 20220125
  Transmission Date: 20220423
  Serious: No
  Sender: FDA-Public Use
  Company Number: US-SA-SAC20220119000652

PATIENT
  Sex: Female

DRUGS (17)
  1. AUBAGIO [Suspect]
     Active Substance: TERIFLUNOMIDE
     Indication: Vitamin D deficiency
     Dosage: 14 MG, QD
     Route: 048
  2. ADDERALL [Concomitant]
     Active Substance: AMPHETAMINE ASPARTATE\AMPHETAMINE SULFATE\DEXTROAMPHETAMINE SACCHARATE\DEXTROAMPHETAMINE SULFATE
  3. ASPIRIN [Concomitant]
     Active Substance: ASPIRIN
  4. BACLOFEN [Concomitant]
     Active Substance: BACLOFEN
  5. BENEFIBER [Concomitant]
     Active Substance: STARCH, WHEAT
  6. BLACK COHOSH [Concomitant]
     Active Substance: BLACK COHOSH
  7. CLEARLAX [Concomitant]
     Active Substance: POLYETHYLENE GLYCOL 3350
  8. COLACE [Concomitant]
     Active Substance: DOCUSATE SODIUM
  9. CRESTOR [Concomitant]
     Active Substance: ROSUVASTATIN CALCIUM
  10. CYMBALTA [Concomitant]
     Active Substance: DULOXETINE HYDROCHLORIDE
  11. DICLOFENAC [Concomitant]
     Active Substance: DICLOFENAC
  12. ESTRADIOL [Concomitant]
     Active Substance: ESTRADIOL
  13. TYLENOL [Concomitant]
     Active Substance: ACETAMINOPHEN
  14. VITAMIN B12 [Concomitant]
     Active Substance: CYANOCOBALAMIN
  15. VIT D [VITAMIN D NOS] [Concomitant]
  16. WELLBUTRIN [Concomitant]
     Active Substance: BUPROPION HYDROCHLORIDE
  17. AUBAGIO [Concomitant]
     Active Substance: TERIFLUNOMIDE

REACTIONS (4)
  - Pain [Not Recovered/Not Resolved]
  - Fatigue [Not Recovered/Not Resolved]
  - Hot flush [Not Recovered/Not Resolved]
  - Product use in unapproved indication [Unknown]
